FAERS Safety Report 22626194 (Version 1)
Quarter: 2023Q2

REPORT INFORMATION
  Report Type: Report from Study
  Country: US (occurrence: US)
  Receive Date: 20230621
  Receipt Date: 20230621
  Transmission Date: 20230721
  Serious: Yes (Hospitalization)
  Sender: FDA-Public Use
  Company Number: US-ALNYLAM PHARMACEUTICALS, INC.-ALN-2023-002864

PATIENT

DRUGS (2)
  1. GIVLAARI [Suspect]
     Active Substance: GIVOSIRAN SODIUM
     Indication: Porphyria acute
     Dosage: UNK
     Route: 065
     Dates: start: 20230117
  2. HEMIN [Suspect]
     Active Substance: HEMIN
     Indication: Porphyria acute
     Route: 065

REACTIONS (3)
  - Porphyria acute [Unknown]
  - Hormone level abnormal [Unknown]
  - Nausea [Unknown]
